FAERS Safety Report 7102938-3 (Version None)
Quarter: 2010Q4

REPORT INFORMATION
  Report Type: 
  Country: None (occurrence: None)
  Receive Date: 20101115
  Receipt Date: 20090522
  Transmission Date: 20110411
  Serious: No
  Sender: FDA-Public Use
  Company Number: US-KINGPHARMUSA00001-K200900640

PATIENT
  Sex: Male
  Weight: 95.238 kg

DRUGS (12)
  1. AVINZA [Suspect]
     Indication: PAIN IN EXTREMITY
     Dosage: 30 MG, QD
     Route: 048
     Dates: start: 20060101, end: 20090501
  2. ABILIFY [Concomitant]
     Indication: DEPRESSION
     Dosage: UNK
  3. ANTACID TAB [Concomitant]
     Dosage: UNK
  4. SEROQUEL [Concomitant]
     Indication: SLEEP DISORDER
     Dosage: 125 MG, QHS
     Route: 048
  5. ALPRAZOLAM [Concomitant]
     Indication: DEPRESSION
     Dosage: 1 TABLET QID, PRN
  6. ALPRAZOLAM [Concomitant]
     Indication: ANXIETY
  7. FLUOXETINE [Concomitant]
     Indication: DEPRESSION
     Dosage: 40 MG, QD
     Route: 048
  8. ADDERALL 10 [Concomitant]
     Dosage: 60 MG QD, PRN
  9. VICON- FORTE [Concomitant]
     Indication: DEPRESSION
     Dosage: UNK
  10. VICON- FORTE [Concomitant]
     Indication: ANXIETY
  11. SULINDAC [Concomitant]
     Dosage: UNK
  12. VITAMIN B COMPLEX CAP [Concomitant]
     Dosage: UNK

REACTIONS (1)
  - DRUG INEFFECTIVE [None]
